FAERS Safety Report 25928545 (Version 2)
Quarter: 2025Q4

REPORT INFORMATION
  Report Type: Spontaneous
  Country: US (occurrence: US)
  Receive Date: 20251016
  Receipt Date: 20251107
  Transmission Date: 20260117
  Serious: Yes (Other)
  Sender: ARGENX BVBA
  Company Number: US-ARGENX-2025-ARGX-US014060

PATIENT

DRUGS (3)
  1. VYVGART [Suspect]
     Active Substance: EFGARTIGIMOD ALFA-FCAB
     Indication: Foetal exposure during pregnancy
     Dosage: UNK
     Route: 064
     Dates: start: 202202
  2. OXYTOCIN [Concomitant]
     Active Substance: OXYTOCIN
     Indication: Foetal exposure during pregnancy
     Dosage: UNK
     Route: 064
  3. PYRIDOSTIGMINE [Concomitant]
     Active Substance: PYRIDOSTIGMINE
     Indication: Foetal exposure during pregnancy
     Dosage: UNK
     Route: 064
     Dates: start: 202109

REACTIONS (2)
  - Nonreassuring foetal heart rate pattern [Recovered/Resolved]
  - Foetal exposure during pregnancy [Recovered/Resolved]

NARRATIVE: CASE EVENT DATE: 20230101
